FAERS Safety Report 10159897 (Version 1)
Quarter: 2014Q2

REPORT INFORMATION
  Report Type: Spontaneous
  Country: US (occurrence: US)
  Receive Date: 20140508
  Receipt Date: 20140508
  Transmission Date: 20141212
  Serious: No
  Sender: FDA-Public Use
  Company Number: US-GLAXOSMITHKLINE-A1040119A

PATIENT
  Age: 74 Year
  Sex: Female

DRUGS (14)
  1. TYKERB [Suspect]
     Indication: BREAST CANCER
     Dosage: 1250MG PER DAY
     Route: 048
     Dates: start: 20120125
  2. BACTRIM [Concomitant]
  3. ACYCLOVIR [Concomitant]
  4. OXYCONTIN [Concomitant]
  5. ZANTAC [Concomitant]
  6. LISINOPRIL [Concomitant]
  7. COREG [Concomitant]
  8. ASPIRIN [Concomitant]
  9. PLAVIX [Concomitant]
  10. LYRICA [Concomitant]
  11. LIPITOR [Concomitant]
  12. METFORMIN [Concomitant]
  13. SYNTHROID [Concomitant]
  14. HERCEPTIN [Concomitant]

REACTIONS (1)
  - Drug ineffective [Unknown]
